FAERS Safety Report 5324329-8 (Version None)
Quarter: 2007Q2

REPORT INFORMATION
  Report Type: 
  Country: None (occurrence: None)
  Receive Date: 20070509
  Receipt Date: 20070426
  Transmission Date: 20071010
  Serious: Yes (Hospitalization)
  Sender: FDA-Public Use
  Company Number: 100#03#2007-01501

PATIENT
  Age: 56 Year
  Sex: Female

DRUGS (7)
  1. CARBOPLATIN [Suspect]
     Indication: DRUG USE FOR UNKNOWN INDICATION
     Dosage: 715 MG INTRAVENOUS
     Route: 042
     Dates: start: 20070405, end: 20070405
  2. COMBIVENT (CHLORAMPHENICOL, COMBIVENT IPRATROPIUM BROMIDE, OXYPHENBUTA [Concomitant]
  3. DEXAMETHASONE TAB [Concomitant]
  4. GRANISETRON  HCL [Concomitant]
  5. METOCLOPRAMIDE [Concomitant]
  6. SEREVENT [Concomitant]
  7. SODIUM DOCUSATE (DOCUSATE) [Concomitant]

REACTIONS (5)
  - BLOOD PRESSURE ABNORMAL [None]
  - DIZZINESS [None]
  - HEART RATE INCREASED [None]
  - HYPERHIDROSIS [None]
  - INFUSION RELATED REACTION [None]
